FAERS Safety Report 5378538-2 (Version None)
Quarter: 2007Q3

REPORT INFORMATION
  Report Type: 
  Country: None (occurrence: None)
  Receive Date: 20070705
  Receipt Date: 20070625
  Transmission Date: 20080115
  Serious: Yes (Hospitalization)
  Sender: FDA-Public Use
  Company Number: FR-ASTRAZENECA-2007CG00997

PATIENT
  Age: 55 Year
  Sex: Female

DRUGS (6)
  1. ZOMIG [Suspect]
     Indication: MIGRAINE
     Route: 048
  2. ISOMERIDE [Suspect]
     Indication: OVERWEIGHT
     Dates: end: 19970101
  3. NEXIUM [Concomitant]
  4. LAROXYL [Concomitant]
  5. SIMVASTATIN [Concomitant]
  6. INDORAMIN [Concomitant]

REACTIONS (2)
  - PULMONARY FIBROSIS [None]
  - PULMONARY HYPERTENSION [None]
